FAERS Safety Report 9709655 (Version 1)
Quarter: 2013Q4

REPORT INFORMATION
  Report Type: Report from Study
  Country: BR (occurrence: BR)
  Receive Date: 20131126
  Receipt Date: 20131126
  Transmission Date: 20140711
  Serious: Yes (Other)
  Sender: FDA-Public Use
  Company Number: PHHY2013BR134702

PATIENT
  Sex: Female

DRUGS (5)
  1. DIOVAN TRIPLE [Suspect]
     Indication: BLOOD PRESSURE ABNORMAL
     Dosage: 1 DF (160 MG VALS,5 MG AMLO, 12.5 MG HYDR), QD
     Route: 048
     Dates: start: 2010
  2. EXFORGE HCT [Suspect]
     Indication: BLOOD PRESSURE ABNORMAL
     Dosage: 1 DF (160 MG VALS,5 MG AMLO, 12.5 MG HYDR), QD
     Route: 048
     Dates: start: 2010
  3. CALCIUM [Concomitant]
     Indication: BONE DISORDER
     Dosage: UNK UKN, UNK
  4. HORMONES [Concomitant]
     Indication: MENOPAUSE
  5. COLECALCIFEROL [Concomitant]

REACTIONS (2)
  - Fall [Unknown]
  - Spinal fracture [Unknown]
